FAERS Safety Report 18792469 (Version 2)
Quarter: 2021Q1

REPORT INFORMATION
  Report Type: Spontaneous
  Country: TR (occurrence: TR)
  Receive Date: 20210127
  Receipt Date: 20210223
  Transmission Date: 20210419
  Serious: Yes (Hospitalization, Other)
  Sender: FDA-Public Use
  Company Number: GB-ALKEM LABORATORIES LIMITED-GB-ALKEM-2021-00287

PATIENT
  Age: 20 Year
  Sex: Male

DRUGS (1)
  1. PREGABALIN. [Suspect]
     Active Substance: PREGABALIN
     Indication: PAIN
     Dosage: 2.7 GRAM, QD
     Route: 065

REACTIONS (10)
  - Psychotic disorder [Recovered/Resolved]
  - Paranoia [Recovered/Resolved]
  - Withdrawal syndrome [Recovered/Resolved]
  - Mutism [Recovered/Resolved]
  - Hallucination, auditory [Recovered/Resolved]
  - Intentional self-injury [Recovered/Resolved]
  - Hallucination, visual [Recovered/Resolved]
  - Suicide attempt [Recovered/Resolved]
  - Blunted affect [Recovered/Resolved]
  - Dysphoria [Recovered/Resolved]
